FAERS Safety Report 17892127 (Version 1)
Quarter: 2020Q2

REPORT INFORMATION
  Report Type: Spontaneous
  Country: DE (occurrence: DE)
  Receive Date: 20200612
  Receipt Date: 20200612
  Transmission Date: 20200714
  Serious: Yes (Congenital Anomaly)
  Sender: FDA-Public Use
  Company Number: DE-ANIPHARMA-2020-DE-000120

PATIENT
  Age: 1 Day
  Sex: Male
  Weight: 2.92 kg

DRUGS (3)
  1. L-THYROXIN [Concomitant]
     Active Substance: LEVOTHYROXINE SODIUM
     Dosage: UNK
     Route: 050
  2. METOPROLOL. [Concomitant]
     Active Substance: METOPROLOL
     Dosage: 95 MG QD
     Route: 050
     Dates: start: 20190329, end: 20191217
  3. CANDESARTAN. [Suspect]
     Active Substance: CANDESARTAN
     Indication: EXPOSURE DURING PREGNANCY
     Dosage: 4 MG QD
     Route: 050
     Dates: start: 20190329, end: 20191217

REACTIONS (5)
  - Polydactyly [Not Recovered/Not Resolved]
  - Renal dysplasia [Not Recovered/Not Resolved]
  - Joint contracture [Not Recovered/Not Resolved]
  - Cranial sutures widening [Not Recovered/Not Resolved]
  - Foot deformity [Not Recovered/Not Resolved]

NARRATIVE: CASE EVENT DATE: 20191217
